FAERS Safety Report 17870216 (Version 1)
Quarter: 2020Q2

REPORT INFORMATION
  Report Type: Spontaneous
  Country: IT (occurrence: IT)
  Receive Date: 20200608
  Receipt Date: 20200608
  Transmission Date: 20200714
  Serious: Yes (Other)
  Sender: FDA-Public Use
  Company Number: IT-ROCHE-2610883

PATIENT
  Age: 76 Year
  Sex: Female
  Weight: 70 kg

DRUGS (1)
  1. TOCILIZUMAB. [Suspect]
     Active Substance: TOCILIZUMAB
     Indication: CORONAVIRUS INFECTION
     Route: 042

REACTIONS (2)
  - Hypertensive crisis [Not Recovered/Not Resolved]
  - Haemorrhagic stroke [Not Recovered/Not Resolved]

NARRATIVE: CASE EVENT DATE: 20200404
